FAERS Safety Report 5228044-0 (Version None)
Quarter: 2007Q1

REPORT INFORMATION
  Report Type: 
  Country: None (occurrence: None)
  Receive Date: 20061201
  Receipt Date: 20060811
  Transmission Date: 20070707
  Serious: Yes (Other)
  Sender: FDA-Public Use
  Company Number: US200606003217

PATIENT
  Age: 71 Year
  Sex: Male
  Weight: 72.6 kg

DRUGS (5)
  1. ALIMTA [Suspect]
     Indication: LUNG CARCINOMA CELL TYPE UNSPECIFIED STAGE IV
     Dosage: 1000 MG, INTRAVENOUS
     Route: 042
     Dates: start: 20060504
  2. FOLIC ACID [Concomitant]
  3. VITAMIN B12 [Concomitant]
  4. CORTICOSTEROID NOS (CORTICOSTEROID NOS) [Concomitant]
  5. BETA BLOCKING AGENTS [Concomitant]

REACTIONS (3)
  - CONSTIPATION [None]
  - DEEP VEIN THROMBOSIS [None]
  - INFECTION [None]
